FAERS Safety Report 6564498-5 (Version None)
Quarter: 2010Q1

REPORT INFORMATION
  Report Type: 
  Country: None (occurrence: None)
  Receive Date: 20100201
  Receipt Date: 20100119
  Transmission Date: 20100710
  Serious: Yes (Hospitalization, Other)
  Sender: FDA-Public Use
  Company Number: US-ELI_LILLY_AND_COMPANY-US200912002178

PATIENT
  Sex: Female

DRUGS (11)
  1. FORTEO [Suspect]
     Indication: OSTEOPOROSIS
     Dosage: 20 UG, DAILY (1/D)
     Dates: start: 20081103, end: 20090609
  2. FORTEO [Suspect]
     Dosage: 20 UG, DAILY (1/D)
     Dates: start: 20091101
  3. LEXAPRO [Concomitant]
  4. MIRAPEX [Concomitant]
     Dosage: 1 MG, EACH EVENING
  5. METFORMIN [Concomitant]
  6. LANTUS [Concomitant]
  7. NOVOLOG [Concomitant]
  8. ASMANEX TWISTHALER [Concomitant]
  9. VERAPAMIL [Concomitant]
  10. GABAPENTIN [Concomitant]
     Dosage: UNK, 3/D
  11. LISINOPRIL [Concomitant]

REACTIONS (4)
  - ABDOMINAL PAIN UPPER [None]
  - HYPERKALAEMIA [None]
  - NAUSEA [None]
  - VOMITING [None]
